FAERS Safety Report 11642462 (Version 1)
Quarter: 2015Q4

REPORT INFORMATION
  Report Type: Spontaneous
  Country: US (occurrence: US)
  Receive Date: 20151019
  Receipt Date: 20151019
  Transmission Date: 20160304
  Serious: No
  Sender: FDA-Public Use
  Company Number: US-ELI_LILLY_AND_COMPANY-US201510003772

PATIENT
  Sex: Female

DRUGS (2)
  1. HUMALOG [Suspect]
     Active Substance: INSULIN LISPRO
     Indication: TYPE 2 DIABETES MELLITUS
     Dosage: 35 U, OTHER
     Route: 065
     Dates: start: 201507
  2. HUMALOG [Suspect]
     Active Substance: INSULIN LISPRO
     Dosage: 35 U, UNKNOWN
     Route: 065
     Dates: start: 201507

REACTIONS (2)
  - Underdose [Unknown]
  - Injection site pain [Recovering/Resolving]

NARRATIVE: CASE EVENT DATE: 20151012
